FAERS Safety Report 5667835-9 (Version None)
Quarter: 2008Q1

REPORT INFORMATION
  Report Type: 
  Country: None (occurrence: None)
  Receive Date: 20080315
  Receipt Date: 20080206
  Transmission Date: 20080703
  Serious: No
  Sender: FDA-Public Use
  Company Number: US-ABBOTT-08P-163-0437211-00

PATIENT
  Sex: Male
  Weight: 84.444 kg

DRUGS (3)
  1. HUMIRA [Suspect]
     Indication: CROHN'S DISEASE
     Route: 058
     Dates: start: 20070115
  2. UNKNOWN ANTICOAGULANT [Concomitant]
     Indication: HEART VALVE OPERATION
  3. MULTIPLE OTHER UNSPECIFIED MEDICATIONS [Concomitant]

REACTIONS (2)
  - FATIGUE [None]
  - INJECTION SITE BRUISING [None]
